FAERS Safety Report 7311945-7 (Version None)
Quarter: 2011Q1

REPORT INFORMATION
  Report Type: 
  Country: None (occurrence: None)
  Receive Date: 20110224
  Receipt Date: 20110211
  Transmission Date: 20110831
  Serious: Yes (Hospitalization, Other)
  Sender: FDA-Public Use
  Company Number: CH-PFIZER INC-2011005683

PATIENT
  Age: 89 Year
  Sex: Female

DRUGS (13)
  1. DAFALGAN [Concomitant]
     Dosage: 1 G, 3X/DAY, LONG TERM
     Route: 048
  2. PASPERTIN [Concomitant]
     Indication: NAUSEA
     Dosage: 10 MG, 3X/DAY
     Route: 058
     Dates: start: 20101001
  3. AMLODIPINE BESILATE [Concomitant]
     Dosage: 5 MG, QD LONG TERM
     Route: 048
  4. ATARAX [Suspect]
     Indication: PREMEDICATION
     Dosage: 25 MG,1 PER 1 TOTAL
     Route: 048
     Dates: start: 20101221, end: 20101221
  5. NEURONTIN [Interacting]
     Indication: DEPRESSION
     Dosage: 300 MG, 3X/DAY FOR A LONG TERM
     Route: 048
  6. TRITTICO [Interacting]
     Indication: DEPRESSION
     Dosage: 50 MG, 1X/DAY
     Route: 048
  7. TEMGESIC [Interacting]
     Indication: ABDOMINAL PAIN
     Dosage: 0.1 MG, 3X/DAY,FOR A LONG TERM
     Route: 060
  8. NEXIUM [Concomitant]
     Dosage: 40 MG, 1X/DAY
     Route: 048
     Dates: start: 20101001
  9. CALCIMAGON-D3 [Concomitant]
     Dosage: 500 MG, 1X/DAY, LONG TERM
     Route: 048
  10. DORMICUM FOR INJECTION [Interacting]
     Indication: PREMEDICATION
     Dosage: 3 MG, 1 PER 1 TOTAL
     Route: 042
     Dates: start: 20101221, end: 20101221
  11. TOREM [Concomitant]
     Dosage: 10 MG, QD
     Route: 048
     Dates: start: 20101001
  12. APROVEL [Concomitant]
     Dosage: 300 MG, QD LONG TERM
     Route: 048
  13. MOVICOL [Concomitant]
     Dosage: 2 DF, 1X/DAY,LONG TERM
     Route: 048

REACTIONS (6)
  - SOMNOLENCE [None]
  - DRUG INTERACTION [None]
  - RESPIRATORY DEPRESSION [None]
  - COMA [None]
  - OXYGEN SATURATION DECREASED [None]
  - TOXICITY TO VARIOUS AGENTS [None]
